FAERS Safety Report 14191227 (Version 2)
Quarter: 2018Q1

REPORT INFORMATION
  Report Type: Spontaneous
  Country: DE (occurrence: DE)
  Receive Date: 20171115
  Receipt Date: 20180222
  Transmission Date: 20180508
  Serious: Yes (Other)
  Sender: FDA-Public Use
  Company Number: DE-BAYER-2017-216774

PATIENT
  Age: 24 Year
  Sex: Female

DRUGS (2)
  1. VISANNE [Suspect]
     Active Substance: DIENOGEST
     Indication: ENDOMETRIOSIS
     Dosage: UNK
     Route: 048
     Dates: start: 201704
  2. JAYDESS [Suspect]
     Active Substance: LEVONORGESTREL
     Dosage: 14 MCG/24HR, CONT
     Dates: start: 201510

REACTIONS (8)
  - Abdominal pain lower [None]
  - Fatigue [Not Recovered/Not Resolved]
  - Abdominal pain [None]
  - Amenorrhoea [Not Recovered/Not Resolved]
  - Weight increased [None]
  - Endometriosis [None]
  - Dysmenorrhoea [None]
  - Pain in extremity [None]

NARRATIVE: CASE EVENT DATE: 201612
